FAERS Safety Report 5478775-2 (Version None)
Quarter: 2007Q4

REPORT INFORMATION
  Report Type: 
  Country: None (occurrence: None)
  Receive Date: 20071002
  Receipt Date: 20070924
  Transmission Date: 20080405
  Serious: Yes (Death, Hospitalization, Other)
  Sender: FDA-Public Use
  Company Number: 2006-02418

PATIENT
  Age: 68 Year
  Sex: Male
  Weight: 80 kg

DRUGS (25)
  1. VELCADE [Suspect]
     Indication: MULTIPLE MYELOMA
     Dosage: SEE IMAGE
     Route: 042
     Dates: start: 20060515, end: 20060525
  2. VELCADE [Suspect]
     Indication: MULTIPLE MYELOMA
     Dosage: SEE IMAGE
     Route: 042
     Dates: start: 20050416
  3. VELCADE [Suspect]
     Indication: MULTIPLE MYELOMA
     Dosage: SEE IMAGE
     Route: 042
     Dates: start: 20050601
  4. VELCADE [Suspect]
     Indication: MULTIPLE MYELOMA
     Dosage: SEE IMAGE
     Route: 042
     Dates: start: 20060227
  5. VELCADE [Suspect]
     Indication: MULTIPLE MYELOMA
     Dosage: SEE IMAGE
     Route: 042
     Dates: start: 20060515
  6. DEXAMETHASONE [Suspect]
     Indication: MULTIPLE MYELOMA
     Dates: start: 20060807, end: 20060810
  7. DEXAMETHASONE [Suspect]
     Indication: MULTIPLE MYELOMA
     Dates: start: 20050416
  8. DEXAMETHASONE [Suspect]
     Indication: MULTIPLE MYELOMA
     Dates: start: 20050601
  9. DEXAMETHASONE [Suspect]
     Indication: MULTIPLE MYELOMA
     Dates: start: 20060227
  10. DEXAMETHASONE [Suspect]
     Indication: MULTIPLE MYELOMA
     Dates: start: 20060515
  11. THALIDOMIDE [Suspect]
     Indication: MULTIPLE MYELOMA
     Dosage: SEE IMAGE
     Dates: start: 20060714, end: 20060816
  12. THALIDOMIDE [Suspect]
     Indication: MULTIPLE MYELOMA
     Dosage: SEE IMAGE
     Dates: start: 20050416
  13. THALIDOMIDE [Suspect]
     Indication: MULTIPLE MYELOMA
     Dosage: SEE IMAGE
     Dates: start: 20060227
  14. THALIDOMIDE [Suspect]
     Indication: MULTIPLE MYELOMA
     Dosage: SEE IMAGE
     Dates: start: 20060515
  15. CISPLATIN [Concomitant]
  16. DOXORUBICIN HCL [Concomitant]
  17. CYCLOPHOSPHAMIDE [Concomitant]
  18. ETOPOSIDE [Concomitant]
  19. MELPHALAN [Concomitant]
  20. LOVENOX [Concomitant]
  21. ACYCLOVIR [Concomitant]
  22. DIFLUCAN [Concomitant]
  23. LEVAQUIN [Concomitant]
  24. PROCRIT [Concomitant]
  25. LORAZEPAM [Concomitant]

REACTIONS (16)
  - AORTIC ARTERIOSCLEROSIS [None]
  - ARTERIOSCLEROSIS CORONARY ARTERY [None]
  - BENIGN GASTROINTESTINAL NEOPLASM [None]
  - BRADYCARDIA [None]
  - EFFUSION [None]
  - GASTROINTESTINAL STROMAL TUMOUR [None]
  - GUILLAIN-BARRE SYNDROME [None]
  - HAEMOTHORAX [None]
  - LARGE INTESTINAL ULCER [None]
  - LEFT VENTRICULAR HYPERTROPHY [None]
  - MASTOID DISORDER [None]
  - PNEUMOTHORAX [None]
  - PULMONARY HAEMORRHAGE [None]
  - SPINAL COMPRESSION FRACTURE [None]
  - SPINAL OSTEOARTHRITIS [None]
  - WEST NILE VIRAL INFECTION [None]
